FAERS Safety Report 7877616-3 (Version None)
Quarter: 2011Q4

REPORT INFORMATION
  Report Type: 
  Country: None (occurrence: None)
  Receive Date: 20111031
  Receipt Date: 20111026
  Transmission Date: 20120403
  Serious: Yes (Death)
  Sender: FDA-Public Use
  Company Number: JP-ASTRAZENECA-2011SE61742

PATIENT
  Age: 93 Year
  Sex: Female

DRUGS (2)
  1. OMEPRAZOLE [Suspect]
     Indication: GASTROINTESTINAL HAEMORRHAGE
     Route: 041
     Dates: start: 20110829, end: 20110829
  2. IRON SUCROSE [Suspect]
     Route: 041
     Dates: start: 20110827, end: 20110829

REACTIONS (1)
  - PLATELET COUNT DECREASED [None]
